FAERS Safety Report 8066771-0 (Version None)
Quarter: 2012Q1

REPORT INFORMATION
  Report Type: 
  Country: None (occurrence: None)
  Receive Date: 20120124
  Receipt Date: 20120118
  Transmission Date: 20120608
  Serious: No
  Sender: FDA-Public Use
  Company Number: US-BAYER-2012-007115

PATIENT
  Sex: Female

DRUGS (2)
  1. MOTRIN [Concomitant]
     Indication: DYSMENORRHOEA
     Dosage: 1600 MG, ONCE
  2. ALEVE (CAPLET) [Suspect]
     Indication: DYSMENORRHOEA
     Dosage: 3 TABLETS ONCE
     Route: 048

REACTIONS (1)
  - DYSMENORRHOEA [None]
